FAERS Safety Report 10419289 (Version 1)
Quarter: 2014Q2

REPORT INFORMATION
  Report Type: Spontaneous
  Country: US (occurrence: None)
  Receive Date: 20140617
  Receipt Date: 20140617
  Transmission Date: 20141212
  Serious: Yes (Other)
  Sender: FDA-Public Use
  Company Number: 1225501

PATIENT
  Age: 58 Year
  Sex: Male

DRUGS (1)
  1. ACTERMA 5% TWO INFUSION DOSES [Suspect]
     Indication: RHEUMATOID ARTHRITIS

REACTIONS (4)
  - Aspartate aminotransferase increased [None]
  - Alanine aminotransferase increased [None]
  - Lipids increased [None]
  - Blood cholesterol increased [None]
